FAERS Safety Report 24952759 (Version 2)
Quarter: 2025Q3

REPORT INFORMATION
  Report Type: Spontaneous
  Country: GB (occurrence: GB)
  Receive Date: 20250211
  Receipt Date: 20250828
  Transmission Date: 20251020
  Serious: Yes (Death, Life-Threatening, Other)
  Sender: AUROBINDO
  Company Number: GB-MHRA-MED-202501271459396280-WKCZH

PATIENT
  Age: 81 Year
  Sex: Male

DRUGS (2)
  1. TADALAFIL [Suspect]
     Active Substance: TADALAFIL
     Indication: Product used for unknown indication
     Route: 065
  2. AMBRISENTAN [Suspect]
     Active Substance: AMBRISENTAN
     Indication: Product used for unknown indication
     Route: 065

REACTIONS (1)
  - Death [Fatal]
